FAERS Safety Report 22017336 (Version 2)
Quarter: 2023Q2

REPORT INFORMATION
  Report Type: Spontaneous
  Country: US (occurrence: US)
  Receive Date: 20230221
  Receipt Date: 20230410
  Transmission Date: 20230722
  Serious: Yes (Other)
  Sender: FDA-Public Use
  Company Number: US-PFIZER INC-PV202300031615

PATIENT
  Age: 75 Year
  Sex: Female

DRUGS (2)
  1. IBRANCE [Suspect]
     Active Substance: PALBOCICLIB
     Indication: Breast cancer female
     Dosage: 125 MG, CYCLIC (DAILY ON DAYS 1-21 FOLLOWED BY 7 DAYS OFF)
     Route: 048
  2. FULVESTRANT [Suspect]
     Active Substance: FULVESTRANT
     Indication: Breast cancer female
     Dosage: UNK, CYCLIC

REACTIONS (4)
  - Rib fracture [Unknown]
  - Fall [Unknown]
  - Hip fracture [Unknown]
  - COVID-19 [Unknown]

NARRATIVE: CASE EVENT DATE: 20221201
